FAERS Safety Report 19148494 (Version 4)
Quarter: 2021Q3

REPORT INFORMATION
  Report Type: Report from Study
  Country: US (occurrence: US)
  Receive Date: 20210416
  Receipt Date: 20210818
  Transmission Date: 20211014
  Serious: No
  Sender: FDA-Public Use
  Company Number: NVSC2021US081699

PATIENT
  Age: 50 Year
  Sex: Female
  Weight: 131.54 kg

DRUGS (1)
  1. KESIMPTA [Suspect]
     Active Substance: OFATUMUMAB
     Indication: MULTIPLE SCLEROSIS
     Dosage: 20 MG, QMO
     Route: 058
     Dates: start: 20210325

REACTIONS (14)
  - Chest discomfort [Recovered/Resolved]
  - Neuralgia [Unknown]
  - Muscle spasticity [Unknown]
  - Feeling abnormal [Unknown]
  - Tremor [Unknown]
  - Cough [Unknown]
  - Dyspepsia [Recovered/Resolved]
  - Malaise [Unknown]
  - Wheezing [Unknown]
  - Nasal congestion [Unknown]
  - Eructation [Recovered/Resolved]
  - Diarrhoea [Recovered/Resolved]
  - Vomiting [Recovered/Resolved]
  - Pyrexia [Unknown]

NARRATIVE: CASE EVENT DATE: 20210325
